FAERS Safety Report 6392970-X (Version None)
Quarter: 2009Q4

REPORT INFORMATION
  Report Type: 
  Country: None (occurrence: None)
  Receive Date: 20091008
  Receipt Date: 20090930
  Transmission Date: 20100525
  Serious: Yes (Hospitalization)
  Sender: FDA-Public Use
  Company Number: US-BIOGENIDEC-2009BI031547

PATIENT
  Age: 43 Year
  Sex: Female

DRUGS (1)
  1. TYSABRI [Suspect]
     Indication: MULTIPLE SCLEROSIS
     Route: 042
     Dates: start: 20080922

REACTIONS (6)
  - DIPLOPIA [None]
  - MIGRAINE [None]
  - NAUSEA [None]
  - SINUS HEADACHE [None]
  - SINUSITIS [None]
  - VISUAL IMPAIRMENT [None]
